FAERS Safety Report 10130502 (Version 1)
Quarter: 2014Q2

REPORT INFORMATION
  Report Type: Spontaneous
  Country: ES (occurrence: ES)
  Receive Date: 20140428
  Receipt Date: 20140428
  Transmission Date: 20141212
  Serious: Yes (Other)
  Sender: FDA-Public Use
  Company Number: ES-BANPHARM-20142570

PATIENT
  Age: 27 Year
  Sex: Male

DRUGS (7)
  1. IBUPROFEN UNKNOWN PRODUCT [Suspect]
     Indication: SUICIDE ATTEMPT
     Dosage: 600 MG, 10 DF,
     Route: 048
  2. DEXKETOPROFEN [Suspect]
     Indication: SUICIDE ATTEMPT
     Dosage: 25 MG, 6 DF,
     Route: 048
  3. DIAZEPAM [Concomitant]
     Indication: SUICIDE ATTEMPT
     Dosage: 10 MG, 8 DF
  4. FLURAZEPAM [Concomitant]
     Indication: SUICIDE ATTEMPT
     Dosage: 30 MG, 8 DF
  5. RUPATADINE [Concomitant]
     Indication: SUICIDE ATTEMPT
     Dosage: 10 MG, 10 DF
  6. MIRTAZAPINE [Concomitant]
     Indication: SUICIDE ATTEMPT
  7. CIPROFLOXACIN [Concomitant]
     Indication: SUICIDE ATTEMPT

REACTIONS (2)
  - Renal failure acute [Recovered/Resolved]
  - Suicide attempt [Recovered/Resolved]
